FAERS Safety Report 18542236 (Version 1)
Quarter: 2020Q4

REPORT INFORMATION
  Report Type: Spontaneous
  Country: US (occurrence: US)
  Receive Date: 20201124
  Receipt Date: 20201124
  Transmission Date: 20210114
  Serious: No
  Sender: FDA-Public Use
  Company Number: US-PFIZER INC-2020460670

PATIENT

DRUGS (1)
  1. ALPRAZOLAM. [Suspect]
     Active Substance: ALPRAZOLAM
     Dosage: UNK

REACTIONS (7)
  - Road traffic accident [Unknown]
  - Feeling abnormal [Unknown]
  - Illness [Unknown]
  - Ulcer [Unknown]
  - Pain [Unknown]
  - Dizziness [Unknown]
  - Abdominal pain upper [Recovered/Resolved]
